FAERS Safety Report 5502111-6 (Version None)
Quarter: 2007Q4

REPORT INFORMATION
  Report Type: 
  Country: None (occurrence: None)
  Receive Date: 20071030
  Receipt Date: 20071019
  Transmission Date: 20080405
  Serious: Yes (Death)
  Sender: FDA-Public Use
  Company Number: JP-JNJFOC-20071005784

PATIENT
  Sex: Male

DRUGS (10)
  1. FINIBAX [Suspect]
     Route: 041
  2. FINIBAX [Suspect]
     Route: 041
  3. FINIBAX [Suspect]
     Indication: PROSTATE CANCER
     Route: 041
  4. FOY [Concomitant]
     Route: 065
  5. HONVAN [Concomitant]
     Route: 041
  6. CONCENTRATED RED CELLS [Concomitant]
     Route: 065
  7. FRESH FROZEN PLASMA [Concomitant]
     Route: 065
  8. OMEPRAL [Concomitant]
     Route: 065
  9. LASIX [Concomitant]
     Route: 065
  10. SEISHOKU [Concomitant]
     Route: 041

REACTIONS (2)
  - OFF LABEL USE [None]
  - PROSTATE CANCER [None]
